FAERS Safety Report 8958505 (Version 1)
Quarter: 2012Q4

REPORT INFORMATION
  Report Type: Spontaneous
  Country: US (occurrence: None)
  Receive Date: 20121205
  Receipt Date: 20121205
  Transmission Date: 20130627
  Serious: Yes (Disabling, Other)
  Sender: FDA-Public Use
  Company Number: None

PATIENT
  Age: 82 Year
  Sex: Female
  Weight: 58.97 kg

DRUGS (2)
  1. PROLIA [Suspect]
     Indication: OSTEOARTHRITIS
     Dosage: q 6 mo.  I.M.
     Route: 030
     Dates: start: 20111229, end: 20120629
  2. PROLIA [Suspect]
     Indication: OSTEOARTHRITIS

REACTIONS (6)
  - Osteonecrosis of jaw [None]
  - Ear pain [None]
  - Myalgia [None]
  - Tooth extraction [None]
  - Swelling face [None]
  - Weight decreased [None]
